FAERS Safety Report 5474556-4 (Version None)
Quarter: 2007Q3

REPORT INFORMATION
  Report Type: 
  Country: None (occurrence: None)
  Receive Date: 20070928
  Receipt Date: 20070914
  Transmission Date: 20080115
  Serious: Yes (Other)
  Sender: FDA-Public Use
  Company Number: CERZ-11834

PATIENT
  Sex: Male
  Weight: 92.5338 kg

DRUGS (1)
  1. CEREZYME [Suspect]
     Indication: GAUCHER'S DISEASE
     Dosage: 60 U/KG Q2WKS IV
     Route: 042
     Dates: start: 20070524

REACTIONS (10)
  - ARTHRALGIA [None]
  - BACK PAIN [None]
  - IRRITABILITY [None]
  - JOINT SWELLING [None]
  - MUSCULOSKELETAL STIFFNESS [None]
  - NECK PAIN [None]
  - PAIN [None]
  - PAIN IN EXTREMITY [None]
  - SPINAL COLUMN STENOSIS [None]
  - TENSION [None]
